FAERS Safety Report 9409240 (Version 4)
Quarter: 2013Q3

REPORT INFORMATION
  Report Type: Spontaneous
  Country: US (occurrence: US)
  Receive Date: 20130719
  Receipt Date: 20130902
  Transmission Date: 20140515
  Serious: No
  Sender: FDA-Public Use
  Company Number: US-PFIZER INC-2013209419

PATIENT
  Age: 51 Year
  Sex: Female
  Weight: 68 kg

DRUGS (4)
  1. PREMARIN [Suspect]
     Indication: VULVOVAGINAL DRYNESS
     Dosage: 0.625 MG/G, WEEKLY
     Route: 067
     Dates: start: 2009
  2. PREMARIN [Suspect]
     Indication: MENOPAUSE
     Dosage: 0.625 MG/G-1/2 APPLICATORFUL, 2X/WEEK
     Route: 067
  3. PREMARIN [Suspect]
     Indication: PREMATURE MENOPAUSE
  4. ALBUTEROL [Concomitant]
     Indication: ASTHMA
     Dosage: 1 PUFF, AS NEEDED

REACTIONS (1)
  - Drug ineffective [Unknown]
